FAERS Safety Report 8546836-7 (Version None)
Quarter: 2012Q3

REPORT INFORMATION
  Report Type: 
  Country: None (occurrence: None)
  Receive Date: 20120727
  Receipt Date: 20120222
  Transmission Date: 20120928
  Serious: No
  Sender: FDA-Public Use
  Company Number: US-ASTRAZENECA-2012SE08608

PATIENT
  Age: 40 Year
  Sex: Male
  Weight: 154.2 kg

DRUGS (6)
  1. CELEXA [Concomitant]
     Indication: DEPRESSION
  2. SEROQUEL XR [Suspect]
     Indication: BIPOLAR DISORDER
     Route: 048
  3. VALIUM [Concomitant]
     Indication: ANXIETY
  4. NEXIUM [Concomitant]
     Indication: GASTROOESOPHAGEAL REFLUX DISEASE
  5. TRAZODONE HYDROCHLORIDE [Concomitant]
     Indication: DEPRESSION
  6. LORTAB [Concomitant]
     Indication: BACK PAIN

REACTIONS (3)
  - BACK PAIN [None]
  - ARTHRITIS [None]
  - INTERVERTEBRAL DISC PROTRUSION [None]
